FAERS Safety Report 8592487-8 (Version None)
Quarter: 2012Q3

REPORT INFORMATION
  Report Type: 
  Country: None (occurrence: None)
  Receive Date: 20120814
  Receipt Date: 20120808
  Transmission Date: 20120928
  Serious: Yes (Hospitalization)
  Sender: FDA-Public Use
  Company Number: US-009507513-1208USA004606

PATIENT

DRUGS (12)
  1. ALPRAZOLAM [Concomitant]
  2. LIDOCAINE [Concomitant]
  3. MAALOX (SIMETHICONE) [Concomitant]
  4. MAXALT [Suspect]
     Indication: MIGRAINE
     Dosage: 1 DF, PRN
     Route: 048
     Dates: start: 20120711
  5. LITHIUM CARBONATE [Concomitant]
  6. DONNATAL [Concomitant]
  7. METHYLPHENIDATE [Concomitant]
  8. FUROSEMIDE [Concomitant]
  9. BUMETANIDE [Concomitant]
  10. PROMETHAZINE [Concomitant]
  11. NEXIUM [Concomitant]
     Route: 048
  12. LEVETIRACETAM [Concomitant]

REACTIONS (1)
  - COELIAC DISEASE [None]
